FAERS Safety Report 23461729 (Version 1)
Quarter: 2024Q1

REPORT INFORMATION
  Report Type: Spontaneous
  Country: US (occurrence: None)
  Receive Date: 20240130
  Receipt Date: 20240130
  Transmission Date: 20240410
  Serious: No
  Sender: FDA-Public Use
  Company Number: None

PATIENT
  Age: 18 Year
  Sex: Female

DRUGS (2)
  1. EPIDIOLEX [Suspect]
     Active Substance: CANNABIDIOL
     Indication: Epilepsy
     Dosage: 100MB BID ORAL??
     Route: 048
     Dates: start: 20220815
  2. DIAZEPAM [Suspect]
     Active Substance: DIAZEPAM

REACTIONS (2)
  - Epilepsy [None]
  - Abdominal pain [None]

NARRATIVE: CASE EVENT DATE: 20240109
